FAERS Safety Report 5529300-9 (Version None)
Quarter: 2007Q4

REPORT INFORMATION
  Report Type: 
  Country: None (occurrence: None)
  Receive Date: 20071129
  Receipt Date: 20071120
  Transmission Date: 20080405
  Serious: Yes (Hospitalization, Other)
  Sender: FDA-Public Use
  Company Number: US-ROCHE-509844

PATIENT
  Age: 50 Year
  Sex: Male

DRUGS (5)
  1. VESANOID [Suspect]
     Dosage: ROUTE REPORTED AS ORAL.
     Route: 048
     Dates: start: 20070209, end: 20070212
  2. VESANOID [Suspect]
     Dosage: ROUTE REPORTED AS ^VIA FEEDING TUBE.^
     Route: 048
     Dates: start: 20070213, end: 20070330
  3. VESANOID [Suspect]
     Dosage: ROUTE REPORTED AS ORAL.
     Route: 048
     Dates: start: 20070331, end: 20070515
  4. VESANOID [Suspect]
     Dosage: REPORTED AS 50 MG TWICE PER DAY, 2 WEEKS ON AND 2 WEEKS OFF.
     Route: 048
     Dates: start: 20070515
  5. CHEMOTHERAPY [Concomitant]
     Dosage: REPORTED AS ^FOUR DAYS OF INTRAVENOUS CHEMOTHERAPY.^
     Route: 042
     Dates: start: 20070209, end: 20070212

REACTIONS (14)
  - ASTHENIA [None]
  - BLINDNESS UNILATERAL [None]
  - CEREBRAL HAEMORRHAGE [None]
  - CONFUSIONAL STATE [None]
  - DIZZINESS [None]
  - DRY SKIN [None]
  - FATIGUE [None]
  - FLUSHING [None]
  - GRAND MAL CONVULSION [None]
  - HYPOAESTHESIA [None]
  - INSOMNIA [None]
  - MYALGIA [None]
  - PARAESTHESIA [None]
  - PRURITUS GENITAL [None]
